FAERS Safety Report 4711470-3 (Version None)
Quarter: 2005Q3

REPORT INFORMATION
  Report Type: 
  Country: None (occurrence: None)
  Receive Date: 20050711
  Receipt Date: 20050623
  Transmission Date: 20060218
  Serious: Yes (Other)
  Sender: FDA-Public Use
  Company Number: SP00453

PATIENT
  Sex: Male

DRUGS (2)
  1. COLAZAL [Suspect]
     Dates: start: 20040101
  2. ALLOPURINOL [Suspect]

REACTIONS (1)
  - RENAL FAILURE [None]
